FAERS Safety Report 9384771 (Version 1)
Quarter: 2013Q3

REPORT INFORMATION
  Report Type: Report from Study
  Country: US (occurrence: US)
  Receive Date: 20130705
  Receipt Date: 20130705
  Transmission Date: 20140515
  Serious: Yes (Other)
  Sender: FDA-Public Use
  Company Number: US-PFIZER INC-2013196026

PATIENT
  Age: 70 Year
  Sex: Female
  Weight: 58.28 kg

DRUGS (12)
  1. LIPITOR [Suspect]
     Indication: BLOOD CHOLESTEROL INCREASED
     Dosage: 20 MG, 1X/DAY
     Route: 048
  2. XARELTO [Suspect]
     Indication: ATRIAL FIBRILLATION
     Dosage: 20 MG, 1X/DAY
     Route: 048
     Dates: start: 201209
  3. XARELTO [Suspect]
     Indication: CEREBROVASCULAR ACCIDENT PROPHYLAXIS
  4. DIGOXIN [Concomitant]
     Indication: ATRIAL FIBRILLATION
     Dosage: 0.25 MG, 1X/DAY
     Route: 048
     Dates: start: 2010
  5. DIOVAN [Concomitant]
     Indication: HYPERTENSION
     Dosage: 160 MG, 1X/DAY
     Route: 048
     Dates: start: 2010
  6. METFORMIN HYDROCHLORIDE [Concomitant]
     Indication: TYPE 2 DIABETES MELLITUS
     Dosage: 1000 MG, 2X/DAY
     Route: 048
     Dates: start: 201212
  7. METOPROLOL [Concomitant]
     Indication: ATRIAL FIBRILLATION
     Dosage: 50 MG, 1X/DAY
     Route: 048
     Dates: start: 2010
  8. SYNTHROID [Concomitant]
     Indication: HYPOTHYROIDISM
     Dosage: 100 UG, 1X/DAY
     Route: 048
  9. TRAZODONE [Concomitant]
     Indication: SLEEP DISORDER
     Dosage: 75 MG, 1 IN 1 HOUR OF SLEEP
  10. TRAZODONE [Concomitant]
     Indication: DEPRESSION
  11. SERTRALINE [Concomitant]
     Indication: ANXIETY
     Dosage: UNK
  12. SERTRALINE [Concomitant]
     Indication: DEPRESSION

REACTIONS (2)
  - Liver function test abnormal [Not Recovered/Not Resolved]
  - Anaemia [Not Recovered/Not Resolved]
